FAERS Safety Report 5606164-6 (Version None)
Quarter: 2008Q1

REPORT INFORMATION
  Report Type: 
  Country: None (occurrence: None)
  Receive Date: 20080129
  Receipt Date: 20061218
  Transmission Date: 20080703
  Serious: No
  Sender: FDA-Public Use
  Company Number: A0631959A

PATIENT
  Sex: Female

DRUGS (2)
  1. WELLBUTRIN [Suspect]
     Indication: ANXIETY
     Route: 065
     Dates: end: 20061030
  2. ADDERALL 10 [Suspect]
     Indication: DRUG USE FOR UNKNOWN INDICATION
     Route: 048
     Dates: start: 20060801, end: 20061030

REACTIONS (2)
  - PANIC REACTION [None]
  - TREMOR [None]
